FAERS Safety Report 4455109-3 (Version None)
Quarter: 2004Q3

REPORT INFORMATION
  Report Type: 
  Country: None (occurrence: None)
  Receive Date: 20040917
  Receipt Date: 20040827
  Transmission Date: 20050211
  Serious: Yes (Disabling, Other)
  Sender: FDA-Public Use
  Company Number: US_0408105092

PATIENT
  Age: 56 Year
  Sex: Male
  Weight: 74 kg

DRUGS (11)
  1. HUMULIN N [Suspect]
     Indication: DIABETES MELLITUS
     Dosage: 30 U DAY
     Dates: start: 19890101
  2. HUMULIN R [Suspect]
     Indication: DIABETES MELLITUS
     Dates: start: 19890101
  3. HUMALOG [Suspect]
     Indication: DIABETES MELLITUS
  4. LANTUS [Concomitant]
  5. NIACIN [Concomitant]
  6. ZOCOR [Concomitant]
  7. METOPROLOL [Concomitant]
  8. XANAX (ALPRAZOLAM DUM) [Concomitant]
  9. ASPIRIN [Concomitant]
  10. ISOSORBIDE [Concomitant]
  11. NITRO PATCH (GLYCERYL TRINITRATE) [Concomitant]

REACTIONS (5)
  - ARTERIAL DISORDER [None]
  - CEREBROVASCULAR ACCIDENT [None]
  - CORONARY ARTERY OCCLUSION [None]
  - PHARMACEUTICAL PRODUCT COMPLAINT [None]
  - TRANSIENT ISCHAEMIC ATTACK [None]
